FAERS Safety Report 9012903 (Version 1)
Quarter: 2013Q1

REPORT INFORMATION
  Report Type: Spontaneous
  Country: DE (occurrence: DE)
  Receive Date: 20130114
  Receipt Date: 20130114
  Transmission Date: 20140127
  Serious: Yes (Other)
  Sender: FDA-Public Use
  Company Number: GXKR2013DE000511

PATIENT
  Age: 78 Year
  Sex: Female
  Weight: 70 kg

DRUGS (1)
  1. ZOLPIDEM [Suspect]
     Indication: SLEEP DISORDER
     Dosage: 5 MG, QD
     Route: 048
     Dates: start: 20121205, end: 20121220

REACTIONS (2)
  - Age-related macular degeneration [Unknown]
  - Visual acuity reduced [Unknown]
